FAERS Safety Report 26010985 (Version 1)
Quarter: 2025Q4

REPORT INFORMATION
  Report Type: Spontaneous
  Country: EU (occurrence: EU)
  Receive Date: 20251107
  Receipt Date: 20251107
  Transmission Date: 20260117
  Serious: Yes (Hospitalization)
  Sender: MYLAN
  Company Number: EU-MYLANLABS-2025M1093847

PATIENT
  Age: 14 Year
  Sex: Female

DRUGS (56)
  1. TACROLIMUS [Suspect]
     Active Substance: TACROLIMUS
     Indication: Colitis ulcerative
     Dosage: 3 MILLIGRAM, QD
  2. TACROLIMUS [Suspect]
     Active Substance: TACROLIMUS
     Dosage: 3 MILLIGRAM, QD
     Route: 048
  3. TACROLIMUS [Suspect]
     Active Substance: TACROLIMUS
     Dosage: 3 MILLIGRAM, QD
     Route: 048
  4. TACROLIMUS [Suspect]
     Active Substance: TACROLIMUS
     Dosage: 3 MILLIGRAM, QD
  5. ADALIMUMAB [Suspect]
     Active Substance: ADALIMUMAB
     Indication: Colitis ulcerative
     Dosage: UNK
  6. ADALIMUMAB [Suspect]
     Active Substance: ADALIMUMAB
     Dosage: UNK
     Route: 065
  7. ADALIMUMAB [Suspect]
     Active Substance: ADALIMUMAB
     Dosage: UNK
     Route: 065
  8. ADALIMUMAB [Suspect]
     Active Substance: ADALIMUMAB
     Dosage: UNK
  9. INFLIXIMAB [Suspect]
     Active Substance: INFLIXIMAB
     Indication: Colitis ulcerative
     Dosage: UNK
  10. INFLIXIMAB [Suspect]
     Active Substance: INFLIXIMAB
     Dosage: UNK
     Route: 065
  11. INFLIXIMAB [Suspect]
     Active Substance: INFLIXIMAB
     Dosage: UNK
     Route: 065
  12. INFLIXIMAB [Suspect]
     Active Substance: INFLIXIMAB
     Dosage: UNK
  13. TOFACITINIB [Suspect]
     Active Substance: TOFACITINIB
     Indication: Colitis ulcerative
     Dosage: 10 MILLIGRAM, BID
  14. TOFACITINIB [Suspect]
     Active Substance: TOFACITINIB
     Dosage: 10 MILLIGRAM, BID
  15. TOFACITINIB [Suspect]
     Active Substance: TOFACITINIB
     Dosage: 10 MILLIGRAM, BID
     Route: 048
  16. TOFACITINIB [Suspect]
     Active Substance: TOFACITINIB
     Dosage: 10 MILLIGRAM, BID
     Route: 048
  17. TOFACITINIB [Suspect]
     Active Substance: TOFACITINIB
     Dosage: 10 MILLIGRAM, QD
  18. TOFACITINIB [Suspect]
     Active Substance: TOFACITINIB
     Dosage: 10 MILLIGRAM, QD
  19. TOFACITINIB [Suspect]
     Active Substance: TOFACITINIB
     Dosage: 10 MILLIGRAM, QD
     Route: 048
  20. TOFACITINIB [Suspect]
     Active Substance: TOFACITINIB
     Dosage: 10 MILLIGRAM, QD
     Route: 048
  21. USTEKINUMAB [Concomitant]
     Active Substance: USTEKINUMAB
     Indication: Colitis ulcerative
     Dosage: UNK
  22. USTEKINUMAB [Concomitant]
     Active Substance: USTEKINUMAB
     Dosage: UNK
     Route: 065
  23. USTEKINUMAB [Concomitant]
     Active Substance: USTEKINUMAB
     Dosage: UNK
     Route: 065
  24. USTEKINUMAB [Concomitant]
     Active Substance: USTEKINUMAB
     Dosage: UNK
  25. UPADACITINIB [Concomitant]
     Active Substance: UPADACITINIB
     Indication: Colitis ulcerative
     Dosage: 45 MILLIGRAM, QD
  26. UPADACITINIB [Concomitant]
     Active Substance: UPADACITINIB
     Dosage: 45 MILLIGRAM, QD
  27. UPADACITINIB [Concomitant]
     Active Substance: UPADACITINIB
     Dosage: 45 MILLIGRAM, QD
     Route: 048
  28. UPADACITINIB [Concomitant]
     Active Substance: UPADACITINIB
     Dosage: 45 MILLIGRAM, QD
     Route: 048
  29. UPADACITINIB [Concomitant]
     Active Substance: UPADACITINIB
     Dosage: 30 MILLIGRAM, QD
  30. UPADACITINIB [Concomitant]
     Active Substance: UPADACITINIB
     Dosage: 30 MILLIGRAM, QD
  31. UPADACITINIB [Concomitant]
     Active Substance: UPADACITINIB
     Dosage: 30 MILLIGRAM, QD
     Route: 048
  32. UPADACITINIB [Concomitant]
     Active Substance: UPADACITINIB
     Dosage: 30 MILLIGRAM, QD
     Route: 048
  33. UPADACITINIB [Concomitant]
     Active Substance: UPADACITINIB
     Dosage: 45 MILLIGRAM, QD
  34. UPADACITINIB [Concomitant]
     Active Substance: UPADACITINIB
     Dosage: 45 MILLIGRAM, QD
     Route: 048
  35. UPADACITINIB [Concomitant]
     Active Substance: UPADACITINIB
     Dosage: 45 MILLIGRAM, QD
  36. UPADACITINIB [Concomitant]
     Active Substance: UPADACITINIB
     Dosage: 45 MILLIGRAM, QD
     Route: 048
  37. VEDOLIZUMAB [Concomitant]
     Active Substance: VEDOLIZUMAB
     Indication: Colitis ulcerative
     Dosage: UNK
  38. VEDOLIZUMAB [Concomitant]
     Active Substance: VEDOLIZUMAB
     Dosage: UNK
     Route: 065
  39. VEDOLIZUMAB [Concomitant]
     Active Substance: VEDOLIZUMAB
     Dosage: UNK
     Route: 065
  40. VEDOLIZUMAB [Concomitant]
     Active Substance: VEDOLIZUMAB
     Dosage: UNK
  41. MESALAMINE [Concomitant]
     Active Substance: MESALAMINE
     Indication: Colitis ulcerative
     Dosage: UNK
  42. MESALAMINE [Concomitant]
     Active Substance: MESALAMINE
     Dosage: UNK
     Route: 065
  43. MESALAMINE [Concomitant]
     Active Substance: MESALAMINE
     Dosage: UNK
     Route: 065
  44. MESALAMINE [Concomitant]
     Active Substance: MESALAMINE
     Dosage: UNK
  45. PREDNISOLONE [Concomitant]
     Active Substance: PREDNISOLONE
     Indication: Colitis ulcerative
     Dosage: UNK
  46. PREDNISOLONE [Concomitant]
     Active Substance: PREDNISOLONE
     Dosage: UNK
     Route: 065
  47. PREDNISOLONE [Concomitant]
     Active Substance: PREDNISOLONE
     Dosage: UNK
     Route: 065
  48. PREDNISOLONE [Concomitant]
     Active Substance: PREDNISOLONE
     Dosage: UNK
  49. AZATHIOPRINE [Concomitant]
     Active Substance: AZATHIOPRINE
     Indication: Colitis ulcerative
     Dosage: UNK
  50. AZATHIOPRINE [Concomitant]
     Active Substance: AZATHIOPRINE
     Dosage: UNK
     Route: 065
  51. AZATHIOPRINE [Concomitant]
     Active Substance: AZATHIOPRINE
     Dosage: UNK
     Route: 065
  52. AZATHIOPRINE [Concomitant]
     Active Substance: AZATHIOPRINE
     Dosage: UNK
  53. METHYLPREDNISOLONE [Concomitant]
     Active Substance: METHYLPREDNISOLONE
     Indication: Colitis ulcerative
     Dosage: 60 MILLIGRAM
  54. METHYLPREDNISOLONE [Concomitant]
     Active Substance: METHYLPREDNISOLONE
     Dosage: 60 MILLIGRAM
     Route: 042
  55. METHYLPREDNISOLONE [Concomitant]
     Active Substance: METHYLPREDNISOLONE
     Dosage: 60 MILLIGRAM
     Route: 042
  56. METHYLPREDNISOLONE [Concomitant]
     Active Substance: METHYLPREDNISOLONE
     Dosage: 60 MILLIGRAM

REACTIONS (2)
  - Drug ineffective for unapproved indication [Unknown]
  - Off label use [Unknown]
